FAERS Safety Report 7756922-7 (Version None)
Quarter: 2011Q3

REPORT INFORMATION
  Report Type: 
  Country: None (occurrence: None)
  Receive Date: 20110916
  Receipt Date: 20110907
  Transmission Date: 20111222
  Serious: Yes (Death, Hospitalization)
  Sender: FDA-Public Use
  Company Number: US-GLAXOSMITHKLINE-A0944819A

PATIENT
  Age: 81 Year
  Sex: Male
  Weight: 93 kg

DRUGS (3)
  1. MELPHALAN HYDROCHLORIDE [Suspect]
     Indication: MULTIPLE MYELOMA
     Route: 042
     Dates: start: 20101119, end: 20110510
  2. VELCADE [Suspect]
     Indication: MULTIPLE MYELOMA
     Route: 042
     Dates: start: 20101119, end: 20110510
  3. PREDNISONE [Suspect]
     Indication: MULTIPLE MYELOMA
     Route: 042
     Dates: start: 20101119, end: 20110510

REACTIONS (5)
  - ASTHENIA [None]
  - MULTI-ORGAN FAILURE [None]
  - PYREXIA [None]
  - FATIGUE [None]
  - DEHYDRATION [None]
